FAERS Safety Report 9456308 (Version 1)
Quarter: 2013Q3

REPORT INFORMATION
  Report Type: Spontaneous
  Country: FR (occurrence: FR)
  Receive Date: 20130813
  Receipt Date: 20130813
  Transmission Date: 20140515
  Serious: Yes (Hospitalization)
  Sender: FDA-Public Use
  Company Number: FR-ASTRAZENECA-2013SE61010

PATIENT
  Age: 26966 Day
  Sex: Female

DRUGS (6)
  1. CRESTOR [Suspect]
     Route: 048
     Dates: end: 20130619
  2. PARACETAMOL [Suspect]
     Dosage: AS REQUIRED
     Route: 048
  3. COAPROVEL [Suspect]
     Route: 048
  4. ZELITREX [Suspect]
     Indication: HERPES ZOSTER
     Route: 048
     Dates: start: 20130606
  5. LAMALINE [Suspect]
     Indication: HERPES ZOSTER
     Route: 048
     Dates: start: 20130606
  6. SERESTA [Suspect]
     Indication: HERPES ZOSTER
     Route: 048
     Dates: start: 20130606

REACTIONS (7)
  - Renal failure acute [Recovered/Resolved]
  - Encephalopathy [Recovered/Resolved]
  - Vomiting [Recovered/Resolved]
  - Headache [Recovered/Resolved]
  - Herpes zoster [Unknown]
  - Dyspepsia [Unknown]
  - Asthenia [Unknown]
